FAERS Safety Report 7986368-8 (Version None)
Quarter: 2011Q4

REPORT INFORMATION
  Report Type: 
  Country: None (occurrence: None)
  Receive Date: 20111216
  Receipt Date: 20110211
  Transmission Date: 20120403
  Serious: No
  Sender: FDA-Public Use
  Company Number: US-GLAXOSMITHKLINE-A0913137A

PATIENT
  Sex: Male

DRUGS (1)
  1. COREG CR [Suspect]
     Route: 048

REACTIONS (1)
  - PAIN IN EXTREMITY [None]
